FAERS Safety Report 20076284 (Version 3)
Quarter: 2022Q4

REPORT INFORMATION
  Report Type: Spontaneous
  Country: JP (occurrence: JP)
  Receive Date: 20211116
  Receipt Date: 20221005
  Transmission Date: 20230113
  Serious: Yes (Hospitalization, Other)
  Sender: FDA-Public Use
  Company Number: JP-NBI-S202100358BIPI

PATIENT
  Age: 72 Year
  Sex: Male

DRUGS (2)
  1. OFEV [Suspect]
     Active Substance: NINTEDANIB
     Indication: Idiopathic interstitial pneumonia
     Route: 048
     Dates: start: 201907
  2. OFEV [Suspect]
     Active Substance: NINTEDANIB
     Indication: Idiopathic pulmonary fibrosis
     Route: 048

REACTIONS (10)
  - Infection [Recovered/Resolved]
  - Impaired healing [Recovered/Resolved]
  - Oropharyngeal cancer [Not Recovered/Not Resolved]
  - Radiation mucositis [Unknown]
  - Dermatitis [Unknown]
  - Pharyngeal inflammation [Unknown]
  - Dysgeusia [Unknown]
  - Dry mouth [Unknown]
  - Pharyngeal stenosis [Not Recovered/Not Resolved]
  - Dysphagia [Not Recovered/Not Resolved]
